FAERS Safety Report 4920541-8 (Version None)
Quarter: 2006Q1

REPORT INFORMATION
  Report Type: 
  Country: None (occurrence: None)
  Receive Date: 20060217
  Receipt Date: 20060207
  Transmission Date: 20060701
  Serious: Yes (Hospitalization, Other)
  Sender: FDA-Public Use
  Company Number: 220220

PATIENT
  Age: 76 Year
  Sex: Male

DRUGS (8)
  1. AVASTIN [Suspect]
     Indication: COLORECTAL CANCER METASTATIC
     Dosage: 5 MG/KG, Q2W, INTRAVENOUS
     Route: 042
     Dates: start: 20050708, end: 20051114
  2. FLUOROURACIL [Concomitant]
  3. LEUCOVORIN CALCIUM [Concomitant]
  4. NORVASC [Concomitant]
  5. MEGACE [Concomitant]
  6. ALTACE [Concomitant]
  7. ALLEGRA [Concomitant]
  8. PERCOCET [Concomitant]

REACTIONS (1)
  - CLOSTRIDIUM COLITIS [None]
